FAERS Safety Report 4902223-1 (Version None)
Quarter: 2006Q1

REPORT INFORMATION
  Report Type: 
  Country: None (occurrence: None)
  Receive Date: 20060202
  Receipt Date: 20060130
  Transmission Date: 20060701
  Serious: Yes (Other)
  Sender: FDA-Public Use
  Company Number: S05-USA-05384-01

PATIENT
  Age: 54 Year
  Sex: Male

DRUGS (3)
  1. LEXAPRO [Suspect]
     Indication: DEPRESSION
     Dosage: 20 MG QD PO
     Route: 048
     Dates: start: 20051110
  2. SEROQUEL [Concomitant]
  3. CLONAZEPAM [Concomitant]

REACTIONS (1)
  - PROSTATE CANCER [None]
